FAERS Safety Report 7600956-X (Version None)
Quarter: 2011Q3

REPORT INFORMATION
  Report Type: 
  Country: None (occurrence: None)
  Receive Date: 20110706
  Receipt Date: 20110706
  Transmission Date: 20111222
  Serious: Yes (Other)
  Sender: FDA-Public Use
  Company Number: None

PATIENT
  Sex: Female
  Weight: 59.8748 kg

DRUGS (4)
  1. OXALIPLATIN [Suspect]
     Indication: COLON CANCER
     Dosage: 133.5 MG Q2WKS IV
     Route: 042
     Dates: start: 20110620
  2. OXALIPLATIN [Suspect]
     Indication: COLON CANCER
     Dosage: 133.5 MG Q2WKS IV
     Route: 042
     Dates: start: 20110606
  3. OXALIPLATIN [Suspect]
     Indication: COLON CANCER
     Dosage: 133.5 MG Q2WKS IV
     Route: 042
     Dates: start: 20110620
  4. OXALIPLATIN [Suspect]
     Indication: COLON CANCER
     Dosage: 133.5 MG Q2WKS IV
     Route: 042
     Dates: start: 20110606

REACTIONS (3)
  - CHILLS [None]
  - NAUSEA [None]
  - INFUSION RELATED REACTION [None]
